FAERS Safety Report 16905150 (Version 1)
Quarter: 2019Q4

REPORT INFORMATION
  Report Type: Spontaneous
  Country: US (occurrence: US)
  Receive Date: 20191010
  Receipt Date: 20191010
  Transmission Date: 20200122
  Serious: No
  Sender: FDA-Public Use
  Company Number: US-PFIZER INC-2019435617

PATIENT
  Age: 78 Year
  Sex: Female
  Weight: 58.97 kg

DRUGS (1)
  1. ADVIL PM [Suspect]
     Active Substance: DIPHENHYDRAMINE CITRATE\IBUPROFEN
     Indication: ARTHRALGIA
     Dosage: 1 DF, 1X/DAY(EVERY NIGHT)

REACTIONS (1)
  - Therapeutic product effect incomplete [Unknown]
